FAERS Safety Report 4886564-2 (Version None)
Quarter: 2006Q1

REPORT INFORMATION
  Report Type: 
  Country: None (occurrence: None)
  Receive Date: 20060118
  Receipt Date: 20060110
  Transmission Date: 20060701
  Serious: Yes (Death, Other)
  Sender: FDA-Public Use
  Company Number: 23709

PATIENT
  Age: 58 Year
  Sex: Female

DRUGS (1)
  1. DACARBAZINE [Suspect]
     Indication: METASTATIC MALIGNANT MELANOMA
     Dosage: 1170 MG/IV
     Route: 042
     Dates: start: 20050608, end: 20050713

REACTIONS (1)
  - DISEASE PROGRESSION [None]
